FAERS Safety Report 5576305-8 (Version None)
Quarter: 2007Q4

REPORT INFORMATION
  Report Type: 
  Country: None (occurrence: None)
  Receive Date: 20071130
  Receipt Date: 20070920
  Transmission Date: 20080405
  Serious: No
  Sender: FDA-Public Use
  Company Number: US200709004576

PATIENT
  Age: 61 Year
  Sex: Female

DRUGS (7)
  1. BYETTA [Suspect]
     Indication: TYPE 2 DIABETES MELLITUS
     Dosage: 5 UG, 2/D, SUBCUTANEOUS
     Route: 058
     Dates: start: 20070920
  2. GLIMEPIRIDE [Concomitant]
  3. ACTOS /USA/ (PIOGLITAZONE HYDROCHLORIDE) [Concomitant]
  4. METFORMIN HCL [Concomitant]
  5. SPIRONOLACTONE [Concomitant]
  6. VYTORIN [Concomitant]
  7. ENABLEX /01760402/ (DARIFENACIN HYDROBROMIDE) [Concomitant]

REACTIONS (4)
  - BLOOD GLUCOSE DECREASED [None]
  - FEELING ABNORMAL [None]
  - NAUSEA [None]
  - TREMOR [None]
